FAERS Safety Report 8029720-7 (Version None)
Quarter: 2012Q1

REPORT INFORMATION
  Report Type: 
  Country: None (occurrence: None)
  Receive Date: 20120104
  Receipt Date: 20111220
  Transmission Date: 20120608
  Serious: Yes (Hospitalization)
  Sender: FDA-Public Use
  Company Number: FK201103086

PATIENT
  Age: 50 Year
  Sex: Female

DRUGS (5)
  1. WARFARIN SODIUM [Suspect]
     Indication: DISSEMINATED INTRAVASCULAR COAGULATION
  2. WARFARIN SODIUM [Suspect]
     Indication: DEEP VEIN THROMBOSIS
  3. CISPLATIN [Suspect]
     Indication: OVARIAN CANCER
     Dosage: 60 MG/M2
  4. HEPARIN [Concomitant]
  5. IRINOTECAN (IRINOTECAN) (IRINOTECAN) [Concomitant]

REACTIONS (4)
  - DECREASED APPETITE [None]
  - INTERNATIONAL NORMALISED RATIO INCREASED [None]
  - DRUG INTERACTION [None]
  - NAUSEA [None]
